FAERS Safety Report 21267615 (Version 2)
Quarter: 2022Q3

REPORT INFORMATION
  Report Type: Report from Study
  Country: US (occurrence: US)
  Receive Date: 20220829
  Receipt Date: 20220920
  Transmission Date: 20221027
  Serious: Yes (Hospitalization, Other)
  Sender: FDA-Public Use
  Company Number: US-AQUESTIVE THERAPEUTICS, INC.-2022AQU00055

PATIENT
  Sex: Male
  Weight: 71.655 kg

DRUGS (2)
  1. EXSERVAN [Suspect]
     Active Substance: RILUZOLE
     Indication: Drooling
     Dosage: 50 MG, 2X/DAY
     Route: 048
     Dates: start: 2021
  2. AMLODIPINE [Concomitant]
     Active Substance: AMLODIPINE BESYLATE

REACTIONS (9)
  - Thrombosis [Recovered/Resolved]
  - Pulmonary thrombosis [Recovered/Resolved]
  - Rectal haemorrhage [Unknown]
  - Dysphagia [Unknown]
  - Malnutrition [Unknown]
  - Gastrointestinal tube insertion [Recovered/Resolved]
  - Pain [Recovered/Resolved]
  - Constipation [Recovered/Resolved]
  - Off label use [Not Recovered/Not Resolved]

NARRATIVE: CASE EVENT DATE: 20210101
